FAERS Safety Report 6764055-1 (Version None)
Quarter: 2010Q2

REPORT INFORMATION
  Report Type: 
  Country: None (occurrence: None)
  Receive Date: 20100608
  Receipt Date: 20100525
  Transmission Date: 20101027
  Serious: Yes (Hospitalization)
  Sender: FDA-Public Use
  Company Number: 010000

PATIENT
  Sex: Male

DRUGS (4)
  1. KEPPRA [Suspect]
     Indication: EPILEPSY
     Dosage: 500 MG QD, ORAL (500 MG BID, ORAL, (500 MG, QD, ORAL)
     Route: 048
     Dates: start: 20100301, end: 20100301
  2. KEPPRA [Suspect]
     Indication: EPILEPSY
     Dosage: 500 MG QD, ORAL (500 MG BID, ORAL, (500 MG, QD, ORAL)
     Route: 048
     Dates: start: 20100302, end: 20100302
  3. KEPPRA [Suspect]
     Indication: EPILEPSY
     Dosage: 500 MG QD, ORAL (500 MG BID, ORAL, (500 MG, QD, ORAL)
     Route: 048
     Dates: start: 20100303
  4. DINTOINA [Concomitant]

REACTIONS (2)
  - HEPATITIS TOXIC [None]
  - INCORRECT DOSE ADMINISTERED [None]
